FAERS Safety Report 11078031 (Version 1)
Quarter: 2015Q2

REPORT INFORMATION
  Report Type: Spontaneous
  Country: US (occurrence: None)
  Receive Date: 20150429
  Receipt Date: 20150429
  Transmission Date: 20150821
  Serious: Yes (Other)
  Sender: FDA-Public Use
  Company Number: None

PATIENT
  Age: 35 Year
  Sex: Female
  Weight: 68.04 kg

DRUGS (10)
  1. PSEUDOPHEDRINE [Concomitant]
     Active Substance: PSEUDOEPHEDRINE
  2. NASONEX [Concomitant]
     Active Substance: MOMETASONE FUROATE
  3. PROPRANOLOL [Concomitant]
     Active Substance: PROPRANOLOL\PROPRANOLOL HYDROCHLORIDE
  4. RESTASIS [Suspect]
     Active Substance: CYCLOSPORINE
     Indication: DRY EYE
     Dosage: 1 DROP TWICE DAILY INTO THE EYE
     Dates: start: 20150405, end: 20150420
  5. OLOPATADINE HCL [Concomitant]
     Active Substance: OLOPATADINE HYDROCHLORIDE
  6. CENTRUM WOEMEN^S DAILY MULTI-VITAMIN [Concomitant]
  7. MUCINEX D MAX [Concomitant]
  8. ZYTREC [Concomitant]
  9. GUAIFENESIN. [Concomitant]
     Active Substance: GUAIFENESIN
  10. NEXIUM [Concomitant]
     Active Substance: ESOMEPRAZOLE MAGNESIUM

REACTIONS (5)
  - Back pain [None]
  - Neck pain [None]
  - Migraine [None]
  - Drug ineffective [None]
  - Sinus congestion [None]

NARRATIVE: CASE EVENT DATE: 20150415
